FAERS Safety Report 6867418-9 (Version None)
Quarter: 2010Q2

REPORT INFORMATION
  Report Type: 
  Country: None (occurrence: None)
  Receive Date: 20100528
  Receipt Date: 20100225
  Transmission Date: 20101027
  Serious: No
  Sender: FDA-Public Use
  Company Number: 2010020966

PATIENT
  Age: 86 Year
  Sex: Female
  Weight: 83.9 kg

DRUGS (1)
  1. TOVIAZ [Suspect]
     Indication: HYPERTONIC BLADDER
     Dosage: 8 MG, DAILY
     Dates: start: 20100101, end: 20100225

REACTIONS (2)
  - DRUG INEFFECTIVE [None]
  - PRURITUS [None]
